FAERS Safety Report 5034412-2 (Version None)
Quarter: 2006Q2

REPORT INFORMATION
  Report Type: 
  Country: None (occurrence: None)
  Receive Date: 20060626
  Receipt Date: 20041222
  Transmission Date: 20061013
  Serious: Yes (Death, Life-Threatening)
  Sender: FDA-Public Use
  Company Number: PHHO2004JP18377

PATIENT
  Age: 46 Year
  Sex: Female

DRUGS (15)
  1. SANDIMMUNE [Suspect]
     Indication: LUNG TRANSPLANT
     Dates: start: 20041117
  2. SIMULECT [Suspect]
     Indication: LUNG TRANSPLANT
     Dosage: 20 MG, ONCE/SINGLE
     Route: 042
     Dates: start: 20041116, end: 20041116
  3. SIMULECT [Suspect]
     Dosage: 20 MG, ONCE/SINGLE
     Route: 042
     Dates: start: 20041120, end: 20041120
  4. SOLU-MEDROL [Concomitant]
     Route: 042
     Dates: start: 20041116
  5. NEORAL [Suspect]
     Indication: LUNG TRANSPLANT
     Dosage: 100 MG, UNK
  6. CELLCEPT [Concomitant]
     Indication: LUNG TRANSPLANT
     Dates: start: 20041114, end: 20041130
  7. ELASPOL [Concomitant]
  8. INOVAN [Concomitant]
  9. DOBUTREX [Concomitant]
  10. ALPROSTADIL [Concomitant]
  11. CORETEC [Concomitant]
  12. DIPRIVAN [Concomitant]
  13. HERBESSER [Concomitant]
  14. DIFLUCAN [Concomitant]
  15. VENOGLOBULIN [Concomitant]

REACTIONS (6)
  - GRAFT DYSFUNCTION [None]
  - HAEMORRHAGE [None]
  - LUNG TRANSPLANT REJECTION [None]
  - MULTI-ORGAN FAILURE [None]
  - PULMONARY OEDEMA [None]
  - RENAL FAILURE [None]
